FAERS Safety Report 6122110-3 (Version None)
Quarter: 2009Q1

REPORT INFORMATION
  Report Type: 
  Country: None (occurrence: None)
  Receive Date: 20090316
  Receipt Date: 20090316
  Transmission Date: 20090719
  Serious: Yes (Hospitalization)
  Sender: FDA-Public Use
  Company Number: None

PATIENT
  Sex: Male
  Weight: 54.4316 kg

DRUGS (1)
  1. PREDNISOLONE ACETATE [Suspect]
     Indication: GIANT PAPILLARY CONJUNCTIVITIS
     Dosage: 10ML TWICE A DAY OPHTHALMIC
     Route: 047

REACTIONS (3)
  - INTRAOCULAR PRESSURE INCREASED [None]
  - VISION BLURRED [None]
  - VISUAL ACUITY REDUCED [None]
